FAERS Safety Report 9908468 (Version 1)
Quarter: 2014Q1

REPORT INFORMATION
  Report Type: Spontaneous
  Country: US (occurrence: None)
  Receive Date: 20140214
  Receipt Date: 20140214
  Transmission Date: 20141002
  Serious: Yes (Hospitalization)
  Sender: FDA-Public Use
  Company Number: None

PATIENT
  Age: 75 Year
  Sex: Female
  Weight: 65 kg

DRUGS (13)
  1. GLIMEPIRIDE [Suspect]
     Indication: ACCIDENTAL EXPOSURE TO PRODUCT
     Dosage: RECENT
     Route: 048
  2. GLIMEPIRIDE [Suspect]
     Indication: MEDICATION ERROR
     Dosage: RECENT
     Route: 048
  3. LEVOTHYROXINE [Concomitant]
  4. IBUPROFEN [Concomitant]
  5. SERTRALINE [Concomitant]
  6. TRAMADOL [Concomitant]
  7. NORCO [Concomitant]
  8. QUETIAPINE [Concomitant]
  9. BENAZEPRIL [Concomitant]
  10. LOSARTAN [Concomitant]
  11. ATENOLOL/CHLORTHALIDONE [Concomitant]
  12. NAMENDA [Concomitant]
  13. BETAMETHASONE [Concomitant]

REACTIONS (3)
  - Hypoglycaemia [None]
  - Accidental exposure to product [None]
  - Wrong patient received medication [None]
